FAERS Safety Report 7512572-9 (Version None)
Quarter: 2011Q2

REPORT INFORMATION
  Report Type: 
  Country: None (occurrence: None)
  Receive Date: 20110520
  Receipt Date: 20110503
  Transmission Date: 20111010
  Serious: Yes (Other)
  Sender: FDA-Public Use
  Company Number: 2011SP007951

PATIENT
  Age: 73 Year
  Sex: Female
  Weight: 90.7194 kg

DRUGS (10)
  1. ASPIRIN [Concomitant]
  2. ASCORBIC ACID [Concomitant]
  3. MAGNESIUM SULFATE [Concomitant]
  4. VITAMIN A [Concomitant]
  5. CALCIUM +D [Concomitant]
  6. ALPRAZOLAM [Concomitant]
  7. POTASSIUM CHLORIDE [Concomitant]
  8. FLEX SEED OIL [Concomitant]
  9. MIRALAX [Suspect]
     Indication: CONSTIPATION
     Dosage: 17 GM; QD; PO 17 GM; UNK; PO
     Route: 048
     Dates: start: 20070401, end: 20110101
  10. MIRALAX [Suspect]
     Indication: CONSTIPATION
     Dosage: 17 GM; QD; PO 17 GM; UNK; PO
     Route: 048

REACTIONS (8)
  - HAIR TEXTURE ABNORMAL [None]
  - ABDOMINAL DISTENSION [None]
  - DRY SKIN [None]
  - CHOLELITHIASIS [None]
  - NAIL DISORDER [None]
  - ARTHROPATHY [None]
  - FLATULENCE [None]
  - EXOSTOSIS [None]
